FAERS Safety Report 9051959 (Version 1)
Quarter: 2013Q1

REPORT INFORMATION
  Report Type: Spontaneous
  Country: US (occurrence: None)
  Receive Date: 20130130
  Receipt Date: 20130130
  Transmission Date: 20140127
  Serious: No
  Sender: FDA-Public Use
  Company Number: None

PATIENT
  Age: 66 Year
  Sex: 0

DRUGS (2)
  1. XELODA 500 MG [Suspect]
     Indication: NEOPLASM MALIGNANT
     Dosage: 1-200 MG
     Route: 048
     Dates: start: 20130115
  2. XELODA 150 MG [Suspect]
     Dosage: 1-150 MG
     Route: 048
     Dates: start: 20130115

REACTIONS (1)
  - Rash [None]
